FAERS Safety Report 7081518-2 (Version None)
Quarter: 2010Q4

REPORT INFORMATION
  Report Type: 
  Country: None (occurrence: None)
  Receive Date: 20101025
  Receipt Date: 20101020
  Transmission Date: 20110411
  Serious: Yes (Other)
  Sender: FDA-Public Use
  Company Number: 20107950

PATIENT
  Age: 38 Year
  Sex: Female

DRUGS (1)
  1. GABALON INTRATHECAL (BACLOFEN INJECTION) [Suspect]
     Indication: MUSCLE SPASTICITY
     Dosage: 70 MCG, DAILY, INTRATHECAL
     Route: 037

REACTIONS (2)
  - MEDICAL DEVICE COMPLICATION [None]
  - WEIGHT INCREASED [None]
